FAERS Safety Report 8253487-0 (Version None)
Quarter: 2012Q2

REPORT INFORMATION
  Report Type: 
  Country: None (occurrence: None)
  Receive Date: 20120402
  Receipt Date: 20120302
  Transmission Date: 20120825
  Serious: No
  Sender: FDA-Public Use
  Company Number: US-AMGEN-USASP2012014142

PATIENT
  Age: 63 Year
  Sex: Female

DRUGS (6)
  1. ENBREL [Suspect]
     Indication: PRODUCT USED FOR UNKNOWN INDICATION
     Dosage: UNK
  2. OS-CAL                             /00188401/ [Concomitant]
     Indication: SUPPLEMENTATION THERAPY
     Dosage: UNK
  3. HUMIRA [Concomitant]
     Indication: RHEUMATOID ARTHRITIS
     Dosage: 40 MG/0.8 ML PEN (40 MG)
     Route: 058
     Dates: start: 20100101
  4. REMICADE [Concomitant]
     Dosage: UNK
  5. HYDROXYUREA [Concomitant]
     Dosage: UNK
  6. RISEDRONATE SODIUM [Concomitant]
     Dosage: (1 IN 1M)

REACTIONS (13)
  - BRONCHITIS [None]
  - LARYNGITIS [None]
  - HEADACHE [None]
  - CHILLS [None]
  - NASAL CONGESTION [None]
  - SINUS HEADACHE [None]
  - PYREXIA [None]
  - COUGH [None]
  - MALAISE [None]
  - EAR INFECTION [None]
  - SINUSITIS [None]
  - DYSPNOEA [None]
  - RHINITIS ALLERGIC [None]
